FAERS Safety Report 8196399-3 (Version None)
Quarter: 2012Q1

REPORT INFORMATION
  Report Type: 
  Country: None (occurrence: None)
  Receive Date: 20120307
  Receipt Date: 20120307
  Transmission Date: 20120608
  Serious: No
  Sender: FDA-Public Use
  Company Number: None

PATIENT
  Age: 75 Year
  Sex: Male
  Weight: 93.6 kg

DRUGS (1)
  1. CARBIDOPA AND LEVODOPA [Suspect]
     Dosage: MG PO
     Dates: start: 20111208, end: 20120126

REACTIONS (2)
  - AGITATION [None]
  - CONFUSIONAL STATE [None]
